FAERS Safety Report 4714042-X (Version None)
Quarter: 2005Q3

REPORT INFORMATION
  Report Type: 
  Country: None (occurrence: None)
  Receive Date: 20050712
  Receipt Date: 20050628
  Transmission Date: 20060218
  Serious: Yes (Hospitalization)
  Sender: FDA-Public Use
  Company Number: CERZ-10937

PATIENT
  Age: 4 Year
  Sex: Female
  Weight: 11 kg

DRUGS (16)
  1. CEREZYME [Suspect]
     Indication: GAUCHER'S DISEASE
     Dosage: 800 UNITS Q2WKS IV
     Route: 042
     Dates: start: 20010208
  2. ZONISAMIDE [Concomitant]
  3. CLONAZEPAM [Concomitant]
  4. VALPROIC ACID [Concomitant]
  5. ETHYL LOFLAZEPATE [Concomitant]
  6. TRICHLORETHYL PHOSPHATE [Concomitant]
  7. PROCATEROL HCL [Concomitant]
  8. CARBOCYSTEINE [Concomitant]
  9. AMBROXOL HYDROCHLORIDE [Concomitant]
  10. FUROSEMIDE [Concomitant]
  11. SPIRONOLACTONE [Concomitant]
  12. BETHANECHOL CHLORIDE [Concomitant]
  13. KETOTIFEN FUMARATE [Concomitant]
  14. CEFPODOXIME PROXETIL [Concomitant]
  15. BIFIDOBACTERIUM [Concomitant]
  16. TPN [Concomitant]

REACTIONS (8)
  - ACID BASE BALANCE ABNORMAL [None]
  - DIARRHOEA [None]
  - HYPERCAPNIA [None]
  - HYPOKALAEMIA [None]
  - MALNUTRITION [None]
  - RESPIRATORY ARREST [None]
  - RESPIRATORY FAILURE [None]
  - RESPIRATORY TRACT INFECTION [None]
